FAERS Safety Report 9615760 (Version 2)
Quarter: 2013Q4

REPORT INFORMATION
  Report Type: Spontaneous
  Country: US (occurrence: US)
  Receive Date: 20131011
  Receipt Date: 20131011
  Transmission Date: 20140711
  Serious: No
  Sender: FDA-Public Use
  Company Number: US-PURDUE-USA-2013-0098698

PATIENT
  Sex: Male
  Weight: 86.17 kg

DRUGS (1)
  1. BUTRANS [Suspect]
     Indication: PAIN
     Route: 062

REACTIONS (7)
  - Activities of daily living impaired [Unknown]
  - Judgement impaired [Unknown]
  - Impaired work ability [Unknown]
  - Drug effect increased [Unknown]
  - Fatigue [Unknown]
  - Hypersomnia [Unknown]
  - Dizziness [Unknown]
